FAERS Safety Report 7049211-X (Version None)
Quarter: 2010Q4

REPORT INFORMATION
  Report Type: 
  Country: None (occurrence: None)
  Receive Date: 20101018
  Receipt Date: 20101012
  Transmission Date: 20110411
  Serious: Yes (Death, Disabling, Other)
  Sender: FDA-Public Use
  Company Number: FR-ELI_LILLY_AND_COMPANY-FR201004002355

PATIENT
  Sex: Male
  Weight: 58 kg

DRUGS (7)
  1. DROTRECOGIN ALFA (ACTIVATED) [Suspect]
     Indication: SEPTIC SHOCK
     Dosage: 24 D/F, EVERY HOUR
     Route: 042
     Dates: start: 20100402, end: 20100406
  2. NOREPINEPHRINE [Concomitant]
     Indication: SEPTIC SHOCK
     Dates: start: 20100401
  3. CEFOTAXIME SODIUM [Concomitant]
     Indication: PNEUMONIA
     Dates: start: 20100401
  4. MORPHINE [Concomitant]
     Indication: SEDATION
     Dates: start: 20100401
  5. MIDAZOLAM [Concomitant]
     Indication: SEDATION
     Dates: start: 20100401
  6. HYDROCORTISONE [Concomitant]
     Indication: SEPTIC SHOCK
     Dates: start: 20100402
  7. CISATRACURIUM [Concomitant]
     Indication: SEDATION
     Dates: start: 20100402

REACTIONS (2)
  - HAEMORRHAGE INTRACRANIAL [None]
  - ISCHAEMIC STROKE [None]
